FAERS Safety Report 9145430 (Version 1)
Quarter: 2013Q1

REPORT INFORMATION
  Report Type: Spontaneous
  Country: US (occurrence: US)
  Receive Date: 20130307
  Receipt Date: 20130307
  Transmission Date: 20140127
  Serious: Yes (Hospitalization)
  Sender: FDA-Public Use
  Company Number: US-BAYER-2013-027747

PATIENT
  Age: 43 Year
  Sex: Female

DRUGS (11)
  1. YAZ [Suspect]
  2. YASMIN [Suspect]
  3. SYNTHROID [Concomitant]
     Dosage: UNK
     Dates: start: 20090117
  4. EFFEXOR [Concomitant]
     Dosage: UNK
     Dates: start: 20090117
  5. EFFEXOR XR [Concomitant]
     Dosage: 75 MG, UNK
  6. DEPAKOTE ER [Concomitant]
     Dosage: 250 MG, UNK
  7. BUPROPION HYDROCHLORIDE [Concomitant]
     Dosage: 100 MG, UNK
  8. NAPROXEN [Concomitant]
     Dosage: 500 MG, UNK
  9. BUDEPRION [Concomitant]
  10. SELENIUM [Concomitant]
  11. POLICOSANOL [Concomitant]

REACTIONS (1)
  - Pulmonary embolism [Recovering/Resolving]
